FAERS Safety Report 12205221 (Version 1)
Quarter: 2016Q1

REPORT INFORMATION
  Report Type: Spontaneous
  Country: SA (occurrence: SA)
  Receive Date: 20160323
  Receipt Date: 20160323
  Transmission Date: 20160526
  Serious: Yes (Hospitalization)
  Sender: FDA-Public Use
  Company Number: PHHY2016SA036414

PATIENT
  Age: 21 Year
  Sex: Male

DRUGS (1)
  1. CLOBETASOL PROPIONATE. [Suspect]
     Active Substance: CLOBETASOL PROPIONATE
     Indication: SKIN IRRITATION
     Route: 065

REACTIONS (2)
  - Cerebral venous thrombosis [Recovered/Resolved]
  - Cushing^s syndrome [Recovered/Resolved]
